FAERS Safety Report 24223520 (Version 3)
Quarter: 2025Q1

REPORT INFORMATION
  Report Type: Spontaneous
  Country: DE (occurrence: DE)
  Receive Date: 20240819
  Receipt Date: 20250117
  Transmission Date: 20250409
  Serious: No
  Sender: PFIZER
  Company Number: DE-PFIZER INC-202400237517

PATIENT

DRUGS (1)
  1. NIMENRIX [Suspect]
     Active Substance: CLOSTRIDIUM TETANI TOXOID ANTIGEN (FORMALDEHYDE INACTIVATED)\MENINGOCOCCAL POLYSACCHARIDE VACCINE, G
     Indication: Immunisation

REACTIONS (1)
  - Liquid product physical issue [Unknown]
